FAERS Safety Report 10869818 (Version 1)
Quarter: 2015Q1

REPORT INFORMATION
  Report Type: Spontaneous
  Country: FR (occurrence: FR)
  Receive Date: 20150226
  Receipt Date: 20150226
  Transmission Date: 20150721
  Serious: Yes (Hospitalization)
  Sender: FDA-Public Use
  Company Number: FR-AUROBINDO-AUR-APL-2015-01489

PATIENT
  Age: 83 Year
  Sex: Male

DRUGS (5)
  1. ZYVOXID [Suspect]
     Active Substance: LINEZOLID
     Indication: ENTEROCOCCAL INFECTION
  2. SOLIAN [Concomitant]
     Active Substance: AMISULPRIDE
     Dosage: 50 MG, DAILY
     Route: 048
  3. SOLIAN [Concomitant]
     Active Substance: AMISULPRIDE
     Indication: PRODUCT USED FOR UNKNOWN INDICATION
     Dosage: 100 MG, DAILY
     Route: 048
  4. ZYVOXID [Suspect]
     Active Substance: LINEZOLID
     Indication: STAPHYLOCOCCAL SEPSIS
     Dosage: 600 MG, DAILY
     Route: 048
     Dates: start: 20150122, end: 20150126
  5. PAROXETINE ARROW [Suspect]
     Active Substance: PAROXETINE\PAROXETINE HYDROCHLORIDE
     Indication: PRODUCT USED FOR UNKNOWN INDICATION
     Dosage: 10 MG, DAILY (1 HALF TABLET)
     Route: 048
     Dates: start: 20150108

REACTIONS (6)
  - Seizure [Recovered/Resolved]
  - Urinary incontinence [Unknown]
  - Hyponatraemia [Unknown]
  - Partial seizures [Unknown]
  - Petit mal epilepsy [Unknown]
  - Confusional state [Not Recovered/Not Resolved]

NARRATIVE: CASE EVENT DATE: 20150124
